FAERS Safety Report 10180020 (Version 1)
Quarter: 2014Q2

REPORT INFORMATION
  Report Type: Spontaneous
  Country: US (occurrence: US)
  Receive Date: 20140519
  Receipt Date: 20140519
  Transmission Date: 20141212
  Serious: No
  Sender: FDA-Public Use
  Company Number: US-AMGEN INC.-USASP2013072588

PATIENT
  Age: 52 Year
  Sex: Female

DRUGS (2)
  1. PROLIA [Suspect]
     Indication: OSTEOPOROSIS POSTMENOPAUSAL
     Route: 065
  2. PREDNISONE [Concomitant]
     Indication: SARCOIDOSIS

REACTIONS (3)
  - Nerve compression [Unknown]
  - Hypoaesthesia [Unknown]
  - Pain in extremity [Unknown]
